FAERS Safety Report 6097091-1 (Version None)
Quarter: 2009Q1

REPORT INFORMATION
  Report Type: 
  Country: None (occurrence: None)
  Receive Date: 20090227
  Receipt Date: 20090212
  Transmission Date: 20090719
  Serious: Yes (Hospitalization)
  Sender: FDA-Public Use
  Company Number: US-AVENTIS-200910784EU

PATIENT
  Age: 59 Year
  Sex: Female
  Weight: 81 kg

DRUGS (10)
  1. ENOXAPARIN SODIUM [Suspect]
     Indication: THROMBOSIS PROPHYLAXIS
     Route: 058
     Dates: start: 20090129, end: 20090201
  2. FEMHRT [Concomitant]
  3. CYMBALTA [Concomitant]
     Dates: start: 20081212
  4. CEFAZOLIN [Concomitant]
     Dosage: DOSE QUANTITY: 29012009
  5. DOCUSATE [Concomitant]
     Dates: start: 20090129, end: 20090206
  6. VANCOMYCIN HCL [Concomitant]
     Dates: start: 20090202, end: 20090202
  7. FUROSEMIDE [Concomitant]
     Dates: start: 20090203, end: 20090203
  8. ASPIRIN [Concomitant]
     Dates: start: 20090203, end: 20090206
  9. ENALAPRIL [Concomitant]
     Dates: start: 20090203, end: 20090206
  10. METOPROLOL [Concomitant]
     Dates: start: 20090203, end: 20090206

REACTIONS (1)
  - HYPOTENSION [None]
